FAERS Safety Report 10240012 (Version 2)
Quarter: 2014Q2

REPORT INFORMATION
  Report Type: Spontaneous
  Country: CO (occurrence: CO)
  Receive Date: 20140616
  Receipt Date: 20140620
  Transmission Date: 20141212
  Serious: Yes (Death)
  Sender: FDA-Public Use
  Company Number: CO-ABBVIE-14P-036-1248660-00

PATIENT
  Sex: Male

DRUGS (2)
  1. SURVANTA [Suspect]
     Indication: ACUTE RESPIRATORY DISTRESS SYNDROME
     Dosage: ONE DOSE
  2. INTRAVENOUS FLUIDS [Concomitant]
     Indication: PRODUCT USED FOR UNKNOWN INDICATION
     Route: 042

REACTIONS (2)
  - Death [Fatal]
  - Drug ineffective [Unknown]
